FAERS Safety Report 11680402 (Version 2)
Quarter: 2015Q4

REPORT INFORMATION
  Report Type: Spontaneous
  Country: US (occurrence: US)
  Receive Date: 20151027
  Receipt Date: 20151104
  Transmission Date: 20160304
  Serious: No
  Sender: FDA-Public Use
  Company Number: US-ELI_LILLY_AND_COMPANY-US201008002799

PATIENT
  Age: 78 Year
  Sex: Female

DRUGS (4)
  1. FORTEO [Suspect]
     Active Substance: TERIPARATIDE
     Dosage: 20 UG, DAILY (1/D)
  2. FORTEO [Suspect]
     Active Substance: TERIPARATIDE
     Indication: OSTEOPOROSIS
     Dosage: 20 UG, DAILY (1/D)
     Dates: start: 20100608
  3. FORTEO [Suspect]
     Active Substance: TERIPARATIDE
     Dosage: 20 UG, DAILY (1/D)
  4. FORTEO [Suspect]
     Active Substance: TERIPARATIDE
     Dosage: 20 UG, DAILY (1/D)

REACTIONS (15)
  - Pain in extremity [Unknown]
  - Skin injury [Recovering/Resolving]
  - Limb injury [Recovering/Resolving]
  - Nausea [Unknown]
  - Hypoacusis [Not Recovered/Not Resolved]
  - Groin pain [Unknown]
  - Insomnia [Unknown]
  - Dizziness [Unknown]
  - Blood calcium increased [Recovered/Resolved]
  - Increased tendency to bruise [Unknown]
  - Incoherent [Unknown]
  - Injection site bruising [Unknown]
  - Impaired healing [Not Recovered/Not Resolved]
  - Middle insomnia [Unknown]
  - Nasopharyngitis [Unknown]

NARRATIVE: CASE EVENT DATE: 201008
